FAERS Safety Report 16288234 (Version 1)
Quarter: 2019Q2

REPORT INFORMATION
  Report Type: Spontaneous
  Country: GB (occurrence: GB)
  Receive Date: 20190508
  Receipt Date: 20190508
  Transmission Date: 20190711
  Serious: Yes (Death, Hospitalization)
  Sender: FDA-Public Use
  Company Number: PHHY2019GB104937

PATIENT
  Age: 33 Year
  Sex: Male

DRUGS (2)
  1. OLANZAPINE. [Suspect]
     Active Substance: OLANZAPINE
     Indication: SCHIZOPHRENIA
     Dosage: 5 MG, QD
     Route: 065
     Dates: start: 20160518
  2. RISPERIDONE. [Concomitant]
     Active Substance: RISPERIDONE
     Indication: PRODUCT USED FOR UNKNOWN INDICATION
     Dosage: SWITCHED TO OLANZAPINE
     Route: 065

REACTIONS (12)
  - Hypoxia [Recovered/Resolved]
  - Haemoptysis [Unknown]
  - Tachycardia [Recovered/Resolved]
  - Hypersensitivity [Fatal]
  - Loss of consciousness [Recovered/Resolved]
  - Foaming at mouth [Recovered/Resolved]
  - Respiratory arrest [Recovered/Resolved]
  - Eosinophilia [Not Recovered/Not Resolved]
  - Drug interaction [Unknown]
  - Hypertension [Recovered/Resolved]
  - Agitation [Unknown]
  - Circulatory collapse [Recovered/Resolved]

NARRATIVE: CASE EVENT DATE: 20160618
